FAERS Safety Report 11746175 (Version 1)
Quarter: 2015Q4

REPORT INFORMATION
  Report Type: Spontaneous
  Country: US (occurrence: None)
  Receive Date: 20151116
  Receipt Date: 20151116
  Transmission Date: 20160304
  Serious: Yes (Other)
  Sender: FDA-Public Use
  Company Number: None

PATIENT
  Age: 33 Month
  Sex: Female
  Weight: 8.1 kg

DRUGS (2)
  1. INTRALIPID [Suspect]
     Active Substance: EGG PHOSPHOLIPIDS\GLYCERIN\SOYBEAN OIL
     Indication: PARENTERAL NUTRITION
     Dosage: 1.8 ML/HR X 18 HOURS
     Route: 042
     Dates: start: 20151112, end: 20151113
  2. CARE FUSION SMARTSITE INFUSION SET [Concomitant]

REACTIONS (2)
  - Product container issue [None]
  - Inappropriate schedule of drug administration [None]

NARRATIVE: CASE EVENT DATE: 20151113
